FAERS Safety Report 10666536 (Version 1)
Quarter: 2014Q4

REPORT INFORMATION
  Report Type: Spontaneous
  Country: US (occurrence: US)
  Receive Date: 20141221
  Receipt Date: 20141221
  Transmission Date: 20150529
  Serious: Yes (Death, Other)
  Sender: FDA-Public Use
  Company Number: US-GLAXOSMITHKLINE INC.-US2014GSK038924

PATIENT
  Age: 51 Year
  Sex: Female

DRUGS (1)
  1. TYKERB [Suspect]
     Active Substance: LAPATINIB DITOSYLATE
     Indication: BREAST CANCER FEMALE
     Dosage: 1250 MG, QD
     Dates: start: 20141113

REACTIONS (1)
  - Death [Fatal]

NARRATIVE: CASE EVENT DATE: 20141128
